FAERS Safety Report 15129307 (Version 1)
Quarter: 2018Q3

REPORT INFORMATION
  Report Type: Spontaneous
  Country: US (occurrence: US)
  Receive Date: 20180711
  Receipt Date: 20180711
  Transmission Date: 20181010
  Serious: No
  Sender: FDA-Public Use
  Company Number: US-GLAXOSMITHKLINE-US2018120228

PATIENT
  Age: 86 Year
  Sex: Female

DRUGS (1)
  1. INCRUSE ELLIPTA [Suspect]
     Active Substance: UMECLIDINIUM BROMIDE
     Indication: BRONCHIECTASIS
     Dosage: 1 PUFF(S), QD
     Dates: start: 20180703

REACTIONS (3)
  - Ill-defined disorder [Not Recovered/Not Resolved]
  - Product use in unapproved indication [Unknown]
  - Pollakiuria [Unknown]

NARRATIVE: CASE EVENT DATE: 201807
